FAERS Safety Report 25681368 (Version 1)
Quarter: 2025Q3

REPORT INFORMATION
  Report Type: Spontaneous
  Country: US (occurrence: US)
  Receive Date: 20250814
  Receipt Date: 20250814
  Transmission Date: 20251020
  Serious: No
  Sender: BAYER HEALTHCARE LLC
  Company Number: US-BAYER-2025A106663

PATIENT
  Age: 44 Year
  Sex: Male

DRUGS (1)
  1. LOTRIMIN ULTRA JOCK ITCH [Suspect]
     Active Substance: BUTENAFINE HYDROCHLORIDE
     Dosage: UNK UNK, BID
     Route: 061
     Dates: start: 20250805, end: 20250810

REACTIONS (3)
  - Hypersensitivity [Recovering/Resolving]
  - Rash papular [Recovering/Resolving]
  - Pruritus [None]

NARRATIVE: CASE EVENT DATE: 20250805
